FAERS Safety Report 13858458 (Version 2)
Quarter: 2017Q3

REPORT INFORMATION
  Report Type: Spontaneous
  Country: JP (occurrence: JP)
  Receive Date: 20170811
  Receipt Date: 20170908
  Transmission Date: 20171127
  Serious: Yes (Other)
  Sender: FDA-Public Use
  Company Number: JP-UCBSA-2017031244

PATIENT
  Age: 5 Year
  Sex: Female

DRUGS (5)
  1. XYZAL [Suspect]
     Active Substance: LEVOCETIRIZINE DIHYDROCHLORIDE
     Indication: URTICARIA
     Dosage: 2.5 ML, BID
     Route: 048
     Dates: start: 20170729, end: 20170731
  2. WIDECILLIN [Concomitant]
     Active Substance: AMOXICILLIN
     Indication: PRODUCT USED FOR UNKNOWN INDICATION
     Dosage: UNK
  3. BANAN [Suspect]
     Active Substance: CEFPODOXIME PROXETIL
     Indication: STREPTOCOCCAL INFECTION
     Dosage: 1.19 MG, 2X/DAY (BID)
     Route: 048
     Dates: start: 20170725, end: 201707
  4. BIOFERMIN R [Concomitant]
     Active Substance: BACILLUS SUBTILIS\LACTOBACILLUS ACIDOPHILUS\STREPTOCOCCUS FAECAIS
     Indication: PRODUCT USED FOR UNKNOWN INDICATION
     Dosage: UNK
  5. BANAN [Suspect]
     Active Substance: CEFPODOXIME PROXETIL
     Dosage: 2.38 MG, ONCE DAILY (QD)
     Route: 048
     Dates: start: 20170727, end: 20170728

REACTIONS (1)
  - Arrhythmia [Recovered/Resolved]

NARRATIVE: CASE EVENT DATE: 20170731
